FAERS Safety Report 23353654 (Version 1)
Quarter: 2024Q1

REPORT INFORMATION
  Report Type: Spontaneous
  Country: US (occurrence: US)
  Receive Date: 20240101
  Receipt Date: 20240101
  Transmission Date: 20240410
  Serious: No
  Sender: FDA-Public Use
  Company Number: US-PURDUE PHARMA-USA-2023-0306324

PATIENT
  Age: 66 Year
  Sex: Male
  Weight: 62.14 kg

DRUGS (3)
  1. OXYCONTIN [Suspect]
     Active Substance: OXYCODONE HYDROCHLORIDE
     Indication: Back pain
     Dosage: UNKNOWN
     Route: 048
  2. OXYCODONE HYDROCHLORIDE [Suspect]
     Active Substance: OXYCODONE HYDROCHLORIDE
     Indication: Back pain
     Dosage: 1 TABLET, PRN (1 TABLET EVERY 4-6 HRS AS NEEDED)
     Route: 048
     Dates: start: 2023
  3. OXYCODONE HYDROCHLORIDE [Suspect]
     Active Substance: OXYCODONE HYDROCHLORIDE
     Dosage: 5 TABLET, AT A TIME
     Route: 048

REACTIONS (7)
  - Intentional product use issue [Unknown]
  - Weight decreased [Unknown]
  - Illness [Unknown]
  - Abdominal discomfort [Unknown]
  - Headache [Unknown]
  - Drug ineffective [Unknown]
  - Product size issue [Unknown]
